FAERS Safety Report 12834046 (Version 1)
Quarter: 2016Q4

REPORT INFORMATION
  Report Type: Spontaneous
  Country: CH (occurrence: CH)
  Receive Date: 20161010
  Receipt Date: 20161010
  Transmission Date: 20170207
  Serious: Yes (Life-Threatening, Hospitalization)
  Sender: FDA-Public Use
  Company Number: CH-TEVA-697801ISR

PATIENT
  Age: 78 Year
  Sex: Male

DRUGS (14)
  1. ASPIRIN CARDIO [Concomitant]
     Active Substance: ASPIRIN
     Indication: PRODUCT USED FOR UNKNOWN INDICATION
     Dosage: 100 MILLIGRAM DAILY; STRENGTH: 100MG
     Route: 048
  2. MAGNEGON [Concomitant]
     Indication: PRODUCT USED FOR UNKNOWN INDICATION
     Dosage: 240 MILLIGRAM DAILY; STRENGTH: 120MG, SPECIAL SOLID FORMS
     Route: 048
  3. VANCOMYCIN [Suspect]
     Active Substance: VANCOMYCIN
     Indication: ENDOCARDITIS BACTERIAL
     Route: 042
     Dates: start: 20160621, end: 20160712
  4. RIFAMPICIN [Concomitant]
     Active Substance: RIFAMPIN
     Dosage: RECHALLENGE WITHOUT ADR
     Route: 048
     Dates: start: 20160816, end: 20160822
  5. PANTOZOL [Concomitant]
     Active Substance: PANTOPRAZOLE SODIUM
     Indication: PRODUCT USED FOR UNKNOWN INDICATION
     Dosage: 20 MILLIGRAM DAILY; STRENGTH: 20MG
     Route: 048
  6. FRAGMIN [Concomitant]
     Active Substance: DALTEPARIN SODIUM
     Indication: PRODUCT USED FOR UNKNOWN INDICATION
     Dosage: 5000 IU (INTERNATIONAL UNIT) DAILY; FORM REPORTED AS: VIALS
     Route: 058
  7. GENTAMYCIN [Concomitant]
     Active Substance: GENTAMICIN
     Indication: ENDOCARDITIS BACTERIAL
     Dosage: 2 DOSES ON 15-AUG-2016 AND 18-AUG-2016 WITHOUT ADR
     Route: 042
     Dates: start: 20160621, end: 20160704
  8. GENTAMYCIN [Concomitant]
     Active Substance: GENTAMICIN
     Route: 042
     Dates: start: 20160815
  9. ALDACTONE [Concomitant]
     Active Substance: SPIRONOLACTONE
     Indication: PRODUCT USED FOR UNKNOWN INDICATION
     Dosage: 25 MILLIGRAM DAILY; STRENGTH: 25MG
     Route: 048
  10. BILOL [Concomitant]
     Active Substance: BISOPROLOL
     Indication: PRODUCT USED FOR UNKNOWN INDICATION
     Dosage: 2.5 MILLIGRAM DAILY; STRENGTH: 2.5MG
     Route: 048
  11. TORASEMID ACTAVIS [Concomitant]
     Indication: PRODUCT USED FOR UNKNOWN INDICATION
     Dosage: 10 MILLIGRAM DAILY; STRENGTH: 10MG
     Route: 048
  12. TAMSULOSIN SANDOZ ECO [Concomitant]
     Indication: PRODUCT USED FOR UNKNOWN INDICATION
     Dosage: .4 MILLIGRAM DAILY; STRENGTH: 0.4MG
     Route: 048
  13. GENTAMYCIN [Concomitant]
     Active Substance: GENTAMICIN
     Route: 042
     Dates: start: 20160818
  14. RIFAMPICIN [Concomitant]
     Active Substance: RIFAMPIN
     Indication: ENDOCARDITIS BACTERIAL
     Route: 048
     Dates: start: 20160621, end: 20160712

REACTIONS (7)
  - Petechiae [Recovered/Resolved]
  - Eosinophilia [Recovered/Resolved]
  - Pyrexia [Unknown]
  - Acute kidney injury [Not Recovered/Not Resolved]
  - Pulseless electrical activity [Unknown]
  - Ventricular tachycardia [Unknown]
  - Rash maculo-papular [Recovered/Resolved]

NARRATIVE: CASE EVENT DATE: 201607
